FAERS Safety Report 8477873-9 (Version None)
Quarter: 2012Q2

REPORT INFORMATION
  Report Type: 
  Country: None (occurrence: None)
  Receive Date: 20120629
  Receipt Date: 20120620
  Transmission Date: 20120825
  Serious: Yes (Hospitalization, Other)
  Sender: FDA-Public Use
  Company Number: PR-ABBOTT-12P-131-0938584-00

PATIENT
  Sex: Male
  Weight: 131.66 kg

DRUGS (8)
  1. UNKNOWN PILL [Concomitant]
     Indication: DEPRESSION
     Route: 048
  2. UNKNOWN PILL [Concomitant]
     Indication: ANXIETY
  3. DIURETIC [Concomitant]
     Indication: HYPERTENSION
     Route: 048
  4. UNKNOWN PILL [Concomitant]
     Indication: HYPERTENSION
     Route: 048
  5. HUMIRA [Suspect]
     Indication: PSORIASIS
     Route: 058
  6. ATIVAN [Concomitant]
     Indication: DEPRESSION
     Route: 048
  7. NORVASC [Concomitant]
     Indication: HYPERTENSION
     Route: 048
  8. ATIVAN [Concomitant]
     Indication: ANXIETY

REACTIONS (1)
  - LOWER LIMB FRACTURE [None]
